FAERS Safety Report 24277461 (Version 2)
Quarter: 2024Q4

REPORT INFORMATION
  Report Type: Spontaneous
  Country: DE (occurrence: DE)
  Receive Date: 20240903
  Receipt Date: 20241112
  Transmission Date: 20250114
  Serious: Yes (Hospitalization, Other)
  Sender: MYLAN
  Company Number: DE-UCBSA-2024041560

PATIENT
  Age: 24 Year
  Sex: Female

DRUGS (41)
  1. EVEROLIMUS [Suspect]
     Active Substance: EVEROLIMUS
     Indication: Lennox-Gastaut syndrome
     Dosage: 5 MILLIGRAM
     Route: 065
  2. EVEROLIMUS [Suspect]
     Active Substance: EVEROLIMUS
     Indication: Tuberous sclerosis complex
     Dosage: 2.5 MILLIGRAM, QD
     Route: 065
     Dates: start: 2020
  3. EVEROLIMUS [Suspect]
     Active Substance: EVEROLIMUS
     Indication: Seizure
     Dosage: 2.5 MILLIGRAM, QD
     Route: 065
  4. EVEROLIMUS [Suspect]
     Active Substance: EVEROLIMUS
     Indication: Status epilepticus
  5. LACOSAMIDE [Suspect]
     Active Substance: LACOSAMIDE
     Indication: Lennox-Gastaut syndrome
     Dosage: UNK (ADDITIONAL DOSES OF LCM)
     Route: 065
  6. LACOSAMIDE [Suspect]
     Active Substance: LACOSAMIDE
     Indication: Tuberous sclerosis complex
     Dosage: 400 MILLIGRAM, QD (400 MILLIGRAM/DAY)
     Route: 065
  7. LACOSAMIDE [Suspect]
     Active Substance: LACOSAMIDE
     Indication: Seizure
     Dosage: 500 MILLIGRAM, QD
     Route: 065
     Dates: start: 2010
  8. LACOSAMIDE [Suspect]
     Active Substance: LACOSAMIDE
     Dosage: 500 MILLIGRAM, QD
     Route: 065
     Dates: start: 2016
  9. LACOSAMIDE [Suspect]
     Active Substance: LACOSAMIDE
     Dosage: 500 MILLIGRAM, QD
     Route: 065
     Dates: start: 2020
  10. TOPIRAMATE [Suspect]
     Active Substance: TOPIRAMATE
     Indication: Lennox-Gastaut syndrome
     Dosage: 900 MILLIGRAM, QD (900 MILLIGRAM/DAY)
     Route: 065
     Dates: start: 2000
  11. TOPIRAMATE [Suspect]
     Active Substance: TOPIRAMATE
     Indication: Tuberous sclerosis complex
     Dosage: 400 MILLIGRAM, QD
     Route: 065
     Dates: start: 2022
  12. TOPIRAMATE [Suspect]
     Active Substance: TOPIRAMATE
     Indication: Status epilepticus
  13. TOPIRAMATE [Suspect]
     Active Substance: TOPIRAMATE
     Indication: Seizure
  14. FENFLURAMINE HYDROCHLORIDE [Suspect]
     Active Substance: FENFLURAMINE HYDROCHLORIDE
     Indication: Status epilepticus
     Dosage: 42 MILLIGRAM, QD (FFA DOSAGE WAS INCREASED TO A PEAK DOSE, NASOGASTRIC, RECEIVED VIA NASOGASTRAL TUB
     Route: 045
  15. FENFLURAMINE HYDROCHLORIDE [Suspect]
     Active Substance: FENFLURAMINE HYDROCHLORIDE
     Indication: Lennox-Gastaut syndrome
     Dosage: 21 MILLIGRAM, QD (21 MILLIGRAM/DAY, NASOGASTRIC)
     Route: 045
  16. FENFLURAMINE HYDROCHLORIDE [Suspect]
     Active Substance: FENFLURAMINE HYDROCHLORIDE
     Indication: Tuberous sclerosis complex
  17. PHENOBARBITAL [Suspect]
     Active Substance: PHENOBARBITAL
     Indication: Lennox-Gastaut syndrome
     Dosage: 200 MILLIGRAM, QD (200 MILLIGRAM/DAY)
     Route: 065
  18. PHENOBARBITAL [Suspect]
     Active Substance: PHENOBARBITAL
     Indication: Status epilepticus
     Dosage: UNK (ADDITIONAL DOSES OF PB)
     Route: 065
  19. PHENOBARBITAL [Suspect]
     Active Substance: PHENOBARBITAL
     Indication: Tuberous sclerosis complex
     Dosage: UNK
     Route: 065
     Dates: start: 2022
  20. VIGABATRIN [Suspect]
     Active Substance: VIGABATRIN
     Indication: Seizure
     Dosage: 900 MILLIGRAM, QD
     Route: 065
     Dates: start: 1998
  21. SULTHIAME [Suspect]
     Active Substance: SULTHIAME
     Indication: Seizure
     Dosage: UNK
     Route: 065
     Dates: start: 2000
  22. PREGABALIN [Suspect]
     Active Substance: PREGABALIN
     Indication: Seizure
     Dosage: UNK (RECEIVED BEFORE 2003)
     Route: 065
  23. PRIMIDONE [Suspect]
     Active Substance: PRIMIDONE
     Indication: Seizure
     Dosage: UNK (RECEIVED BEFORE 2003)
     Route: 065
  24. ZONISAMIDE [Suspect]
     Active Substance: ZONISAMIDE
     Indication: Seizure
     Dosage: UNK (RECEIVED BEFORE 2003)
     Route: 065
  25. PHENYTOIN [Suspect]
     Active Substance: PHENYTOIN
     Indication: Seizure
     Dosage: 1500 MILLIGRAM, QD
     Route: 065
     Dates: start: 2008, end: 2020
  26. PHENYTOIN [Suspect]
     Active Substance: PHENYTOIN
     Indication: Status epilepticus
     Dosage: 1.5 GRAM (RECEIVED LOADING DOSE OF 1.5G OVER 30?MIN)
     Route: 042
     Dates: start: 2022, end: 2022
  27. PHENYTOIN [Suspect]
     Active Substance: PHENYTOIN
     Dosage: 750 MILLIGRAM (RECEIVED 750MG OVER 12?H)
     Route: 042
     Dates: start: 2022, end: 2022
  28. LEVETIRACETAM [Suspect]
     Active Substance: LEVETIRACETAM
     Indication: Seizure
     Dosage: 3000 MILLIGRAM, QD
     Route: 065
     Dates: start: 2010, end: 2020
  29. VALPROIC ACID [Suspect]
     Active Substance: VALPROIC ACID
     Indication: Seizure
     Dosage: 1500 MILLIGRAM, QD
     Route: 065
     Dates: start: 2010
  30. VALPROIC ACID [Suspect]
     Active Substance: VALPROIC ACID
     Dosage: 1.2 GRAM, QD
     Route: 065
     Dates: start: 2022
  31. CLOBAZAM [Suspect]
     Active Substance: CLOBAZAM
     Indication: Seizure
     Dosage: 20 MILLIGRAM, QD
     Route: 065
     Dates: start: 2014
  32. RUFINAMIDE [Suspect]
     Active Substance: RUFINAMIDE
     Indication: Seizure
     Dosage: 3200 MILLIGRAM, QD
     Route: 065
     Dates: start: 2015
  33. CANNABIDIOL [Suspect]
     Active Substance: CANNABIDIOL
     Indication: Seizure
     Dosage: 1580 MILLIGRAM, QD
     Route: 065
     Dates: start: 2020
  34. BRIVARACETAM [Suspect]
     Active Substance: BRIVARACETAM
     Indication: Seizure
     Dosage: 200 MILLIGRAM, QD
     Route: 065
     Dates: start: 2020, end: 2022
  35. MIDAZOLAM [Suspect]
     Active Substance: MIDAZOLAM
     Indication: Seizure
     Dosage: UNK
     Route: 065
     Dates: start: 2022
  36. PERAMPANEL [Suspect]
     Active Substance: PERAMPANEL
     Indication: Seizure
     Dosage: 12 MILLIGRAM, QD
     Route: 065
     Dates: start: 2022
  37. PROPOFOL [Suspect]
     Active Substance: PROPOFOL
     Indication: Seizure
     Dosage: UNK
     Route: 065
     Dates: start: 20221103, end: 20221109
  38. PROPOFOL [Suspect]
     Active Substance: PROPOFOL
     Dosage: UNK
     Route: 065
  39. DIAZEPAM [Suspect]
     Active Substance: DIAZEPAM
     Indication: Status epilepticus
     Dosage: UNK
     Route: 065
     Dates: start: 2022
  40. ESKETAMINE [Suspect]
     Active Substance: ESKETAMINE
     Indication: Status epilepticus
     Dosage: UNK
     Route: 065
     Dates: start: 2022
  41. ISOFLURANE [Suspect]
     Active Substance: ISOFLURANE
     Indication: Status epilepticus
     Dosage: UNK
     Route: 065
     Dates: start: 2022

REACTIONS (5)
  - Seizure [Unknown]
  - Rebound effect [Unknown]
  - Drug ineffective [Unknown]
  - Pyrexia [Unknown]
  - Off label use [Unknown]

NARRATIVE: CASE EVENT DATE: 20221101
